FAERS Safety Report 24681870 (Version 3)
Quarter: 2025Q4

REPORT INFORMATION
  Report Type: Report from Study
  Country: US (occurrence: US)
  Receive Date: 20241130
  Receipt Date: 20251229
  Transmission Date: 20260118
  Serious: Yes (Hospitalization)
  Sender: ABBVIE
  Company Number: US-ABBVIE-6023849

PATIENT
  Age: 85 Year
  Sex: Female

DRUGS (1)
  1. VENCLEXTA [Suspect]
     Active Substance: VENETOCLAX
     Indication: Acute myeloid leukaemia
     Dosage: TIME INTERVAL: 0.33333333 DAYS: 4 TABLETS BY MOUTH ONCE DAILY FOR 21 DAYS OF A 49 DAY CYCLE, ?4 T...
     Route: 048
     Dates: start: 20200824, end: 202512

REACTIONS (3)
  - Full blood count decreased [Unknown]
  - Lower limb fracture [Unknown]
  - Blood potassium decreased [Unknown]

NARRATIVE: CASE EVENT DATE: 20241115
